FAERS Safety Report 10496513 (Version 3)
Quarter: 2015Q1

REPORT INFORMATION
  Report Type: Spontaneous
  Country: ZA (occurrence: ZA)
  Receive Date: 20141004
  Receipt Date: 20150330
  Transmission Date: 20150720
  Serious: Yes (Hospitalization)
  Sender: FDA-Public Use
  Company Number: ZA-009507513-1409ZAF013866

PATIENT
  Age: 22 Year
  Sex: Female

DRUGS (1)
  1. IMPLANON [Suspect]
     Active Substance: ETONOGESTREL
     Dosage: UNK
     Route: 059
     Dates: start: 20140911, end: 201409

REACTIONS (4)
  - General anaesthesia [Unknown]
  - Depressed mood [Unknown]
  - Breast tenderness [Unknown]
  - Mood altered [Unknown]

NARRATIVE: CASE EVENT DATE: 201409
